FAERS Safety Report 22030495 (Version 1)
Quarter: 2023Q1

REPORT INFORMATION
  Report Type: Spontaneous
  Country: US (occurrence: US)
  Receive Date: 20230223
  Receipt Date: 20230223
  Transmission Date: 20230418
  Serious: No
  Sender: FDA-Public Use
  Company Number: US-LANTHEUS-LMI-2022-01177

PATIENT
  Age: 58 Year
  Sex: Male
  Weight: 93 kg

DRUGS (1)
  1. DEFINITY [Suspect]
     Active Substance: PERFLUTREN
     Indication: Echocardiogram
     Dosage: 3 MILLILITRE (1.5 ML DEFINITY PREPARED IN 8 ML DILUENT)
     Route: 042
     Dates: start: 20220927, end: 20220927

REACTIONS (4)
  - Pain in extremity [Recovered/Resolved]
  - Chest discomfort [Recovered/Resolved]
  - Chest pain [Recovered/Resolved]
  - Back pain [Recovered/Resolved]

NARRATIVE: CASE EVENT DATE: 20220927
